FAERS Safety Report 9371957 (Version 1)
Quarter: 2013Q2

REPORT INFORMATION
  Report Type: Spontaneous
  Country: US (occurrence: US)
  Receive Date: 20130627
  Receipt Date: 20130627
  Transmission Date: 20140414
  Serious: Yes (Other)
  Sender: FDA-Public Use
  Company Number: US-PFIZER INC-2013189897

PATIENT
  Age: 52 Year
  Sex: Male
  Weight: 77.1 kg

DRUGS (5)
  1. METHOTREXATE SODIUM [Suspect]
     Indication: MYOSITIS
     Dosage: UNK
  2. PREDNISOLONE [Concomitant]
     Indication: MYOSITIS
     Dosage: UNK
  3. METHYLPREDNISOLONE [Concomitant]
     Indication: MYOSITIS
     Dosage: UNK
  4. MAGNESIUM [Concomitant]
     Indication: MYOSITIS
     Dosage: UNK
  5. POTASSIUM [Concomitant]
     Indication: MYOSITIS
     Dosage: UNK

REACTIONS (2)
  - Adrenal disorder [Unknown]
  - Thyroid disorder [Unknown]
